FAERS Safety Report 4619703-9 (Version None)
Quarter: 2005Q1

REPORT INFORMATION
  Report Type: 
  Country: None (occurrence: None)
  Receive Date: 20050317
  Receipt Date: 20050317
  Transmission Date: 20050727
  Serious: No
  Sender: FDA-Public Use
  Company Number: None

PATIENT
  Sex: Female
  Weight: 67.586 kg

DRUGS (1)
  1. GENERIC L-THYROXINE [Suspect]
     Indication: HYPOTHYROIDISM
     Dosage: 1 PO DAILY
     Route: 048
     Dates: start: 20050221

REACTIONS (4)
  - DIARRHOEA [None]
  - DYSGEUSIA [None]
  - HYPERSENSITIVITY [None]
  - STOMACH DISCOMFORT [None]
